FAERS Safety Report 22382343 (Version 1)
Quarter: 2023Q2

REPORT INFORMATION
  Report Type: Spontaneous
  Country: US (occurrence: US)
  Receive Date: 20230530
  Receipt Date: 20230530
  Transmission Date: 20230721
  Serious: Yes (Other)
  Sender: FDA-Public Use
  Company Number: US-STRIDES ARCOLAB LIMITED-2023SP004612

PATIENT
  Age: 50 Year
  Sex: Male

DRUGS (5)
  1. PREDNISOLONE [Suspect]
     Active Substance: PREDNISOLONE
     Indication: B-cell lymphoma
     Dosage: UNK (AS A PART OF CHOP REGIMEN)
     Route: 065
  2. DOXORUBICIN [Suspect]
     Active Substance: DOXORUBICIN
     Indication: B-cell lymphoma
     Dosage: UNK (AS A PAT OF CHOP REGIMEN)
     Route: 065
  3. CYCLOPHOSPHAMIDE [Suspect]
     Active Substance: CYCLOPHOSPHAMIDE
     Indication: B-cell lymphoma
     Dosage: UNK (AS A PART OF CHOP REGIMEN)
     Route: 065
  4. VINCRISTINE [Suspect]
     Active Substance: VINCRISTINE
     Indication: B-cell lymphoma
     Dosage: UNK (AS A PART OF CHOP REGIMEN)
     Route: 065
  5. CRIZOTINIB [Suspect]
     Active Substance: CRIZOTINIB
     Indication: B-cell lymphoma
     Dosage: UNK
     Route: 065

REACTIONS (1)
  - Disease progression [Unknown]
